FAERS Safety Report 7092956-6 (Version None)
Quarter: 2010Q4

REPORT INFORMATION
  Report Type: 
  Country: None (occurrence: None)
  Receive Date: 20101110
  Receipt Date: 20101102
  Transmission Date: 20110411
  Serious: Yes (Death, Other)
  Sender: FDA-Public Use
  Company Number: IL-CELGENEUS-082-C5013-10110403

PATIENT
  Age: 66 Year
  Sex: Male

DRUGS (6)
  1. CC-5013 [Suspect]
     Route: 048
     Dates: start: 20071227
  2. CC-5013 [Suspect]
     Route: 048
     Dates: start: 20090121, end: 20090203
  3. MELPHALAN HYDROCHLORIDE [Suspect]
     Dosage: 0.10 MG/KG
     Route: 065
     Dates: start: 20071227
  4. PREDNISONE [Suspect]
     Route: 065
     Dates: start: 20071227
  5. REVLIMID [Suspect]
     Route: 065
  6. EPOETIN BETA [Concomitant]
     Indication: ANAEMIA
     Route: 065
     Dates: start: 20080326, end: 20100319

REACTIONS (2)
  - ACUTE MYELOID LEUKAEMIA [None]
  - MYOCARDIAL ISCHAEMIA [None]
